FAERS Safety Report 18782105 (Version 1)
Quarter: 2021Q1

REPORT INFORMATION
  Report Type: Spontaneous
  Country: US (occurrence: US)
  Receive Date: 20210125
  Receipt Date: 20210125
  Transmission Date: 20210419
  Serious: No
  Sender: FDA-Public Use
  Company Number: US-ALLERGAN-2001257US

PATIENT
  Sex: Female

DRUGS (2)
  1. RESTASIS [Suspect]
     Active Substance: CYCLOSPORINE
     Indication: CORNEAL SCAR
  2. RESTASIS [Suspect]
     Active Substance: CYCLOSPORINE
     Indication: DRY EYE
     Dosage: UNK
     Route: 047

REACTIONS (1)
  - Off label use [Unknown]
